FAERS Safety Report 9079685 (Version 3)
Quarter: 2013Q1

REPORT INFORMATION
  Report Type: Spontaneous
  Country: US (occurrence: US)
  Receive Date: 20130130
  Receipt Date: 20130327
  Transmission Date: 20140127
  Serious: Yes (Death)
  Sender: FDA-Public Use
  Company Number: US-INCYTE CORPORATION-2013IN000159

PATIENT
  Age: 82 Year
  Sex: Male
  Weight: 92.06 kg

DRUGS (11)
  1. JAKAFI [Suspect]
     Indication: MYELOPROLIFERATIVE DISORDER
     Dosage: 10 MG, BID
     Route: 048
     Dates: start: 201208
  2. JAKAFI [Suspect]
     Dosage: 20 MG, BID
     Route: 048
     Dates: end: 20130110
  3. METHOTREXATE [Concomitant]
     Dosage: UNK MG, UNK
  4. PREDNISONE [Concomitant]
  5. NAPROXEN [Concomitant]
  6. TERBUTALINE [Concomitant]
  7. SYMBICORT [Concomitant]
  8. HYDROXYUREA [Concomitant]
  9. ASPIRIN EC [Concomitant]
  10. DEXILANT [Concomitant]
  11. FOLIC ACID [Concomitant]

REACTIONS (1)
  - Cardiac valve disease [Fatal]
